FAERS Safety Report 21205952 (Version 1)
Quarter: 2022Q3

REPORT INFORMATION
  Report Type: Spontaneous
  Country: US (occurrence: US)
  Receive Date: 20220812
  Receipt Date: 20220812
  Transmission Date: 20221027
  Serious: Yes (Other)
  Sender: FDA-Public Use
  Company Number: US-BAYER-2022A108611

PATIENT
  Sex: Female

DRUGS (1)
  1. MIRALAX [Suspect]
     Active Substance: POLYETHYLENE GLYCOL 3350

REACTIONS (10)
  - Dyspnoea [Unknown]
  - Drug hypersensitivity [None]
  - Rash [Unknown]
  - Dysphagia [Unknown]
  - Dry mouth [Unknown]
  - Chest discomfort [Unknown]
  - Gastrointestinal disorder [Unknown]
  - Nausea [Unknown]
  - Headache [Unknown]
  - Palpitations [Unknown]
